FAERS Safety Report 24041434 (Version 1)
Quarter: 2024Q3

REPORT INFORMATION
  Report Type: Report from Study
  Country: US (occurrence: US)
  Receive Date: 20240702
  Receipt Date: 20240702
  Transmission Date: 20241017
  Serious: Yes (Hospitalization)
  Sender: OTSUKA
  Company Number: US-OTSUKA-2024_017811

PATIENT
  Age: 45 Year
  Sex: Female

DRUGS (1)
  1. TOLVAPTAN [Suspect]
     Active Substance: TOLVAPTAN
     Indication: Congenital cystic kidney disease
     Dosage: UNK
     Route: 065
     Dates: start: 20240610

REACTIONS (2)
  - Blood sodium decreased [Not Recovered/Not Resolved]
  - Polydipsia [Unknown]

NARRATIVE: CASE EVENT DATE: 20240601
